FAERS Safety Report 8119802-3 (Version None)
Quarter: 2012Q1

REPORT INFORMATION
  Report Type: 
  Country: None (occurrence: None)
  Receive Date: 20120206
  Receipt Date: 20120206
  Transmission Date: 20120608
  Serious: Yes (Other)
  Sender: FDA-Public Use
  Company Number: None

PATIENT
  Sex: Male
  Weight: 103.96 kg

DRUGS (9)
  1. ONDANSETRON [Concomitant]
  2. CEFTRIAXONE [Suspect]
     Indication: PNEUMOCOCCAL SEPSIS
     Dosage: 2 GRAMS EVERY 12 HOURS IV
     Route: 042
     Dates: start: 20111004, end: 20111005
  3. CEFTRIAXONE [Suspect]
     Indication: MENINGITIS
     Dosage: 2 GRAMS EVERY 12 HOURS IV
     Route: 042
     Dates: start: 20111004, end: 20111005
  4. ASPIRIN [Concomitant]
  5. ZOLPIDEM TARTRATE [Concomitant]
  6. DOCUSATE SODIUM [Concomitant]
  7. FIORCET [Concomitant]
  8. TRAZODONE HCL [Concomitant]
  9. OXYCODONE HCL [Concomitant]

REACTIONS (1)
  - PANCYTOPENIA [None]
